FAERS Safety Report 16514578 (Version 1)
Quarter: 2019Q3

REPORT INFORMATION
  Report Type: Spontaneous
  Country: US (occurrence: US)
  Receive Date: 20190702
  Receipt Date: 20190702
  Transmission Date: 20191004
  Serious: No
  Sender: FDA-Public Use
  Company Number: US-MYLANLABS-2019M1057026

PATIENT
  Sex: Female
  Weight: 66 kg

DRUGS (1)
  1. LIDOCAINE PATCH [Suspect]
     Active Substance: LIDOCAINE
     Indication: SCIATICA
     Dosage: UNK
     Route: 003
     Dates: start: 20190610

REACTIONS (5)
  - Product quality issue [Unknown]
  - Off label use [Not Recovered/Not Resolved]
  - Frustration tolerance decreased [Not Recovered/Not Resolved]
  - Product adhesion issue [Unknown]
  - Pain [Not Recovered/Not Resolved]
